FAERS Safety Report 8091863-X (Version None)
Quarter: 2012Q1

REPORT INFORMATION
  Report Type: 
  Country: None (occurrence: None)
  Receive Date: 20120129
  Receipt Date: 20111206
  Transmission Date: 20120608
  Serious: No
  Sender: FDA-Public Use
  Company Number: US-ABBOTT-11P-163-0881140-00

PATIENT
  Age: 52 Year
  Sex: Male

DRUGS (5)
  1. REMERON [Concomitant]
     Indication: DEPRESSION
  2. OXYCONTIN [Concomitant]
     Indication: BACK PAIN
  3. HUMIRA [Suspect]
     Indication: PSORIASIS
     Dates: start: 20110601
  4. ALPRAZOLAM [Concomitant]
     Indication: ANXIETY
  5. CYMBALTA [Concomitant]
     Indication: DEPRESSION

REACTIONS (1)
  - CONTUSION [None]
